FAERS Safety Report 4505398-1 (Version None)
Quarter: 2004Q4

REPORT INFORMATION
  Report Type: 
  Country: None (occurrence: None)
  Receive Date: 20041116
  Receipt Date: 20041102
  Transmission Date: 20050328
  Serious: Yes (Other)
  Sender: FDA-Public Use
  Company Number: S04-FRA-07536-01

PATIENT
  Age: 45 Year
  Sex: Male

DRUGS (1)
  1. EBIXA (MEMANTINE) [Suspect]
     Indication: VASCULAR DEMENTIA

REACTIONS (3)
  - DIABETIC COMPLICATION [None]
  - GENERALISED OEDEMA [None]
  - OEDEMA PERIPHERAL [None]
